FAERS Safety Report 4412270-4 (Version None)
Quarter: 2004Q2

REPORT INFORMATION
  Report Type: 
  Country: None (occurrence: None)
  Receive Date: 20040630
  Receipt Date: 20040318
  Transmission Date: 20050107
  Serious: No
  Sender: FDA-Public Use
  Company Number: 04P-163-0253960-00

PATIENT
  Sex: Female

DRUGS (8)
  1. HUMIRA [Suspect]
     Indication: RHEUMATOID ARTHRITIS
     Dosage: 40 MG, 1 IN 2 WK, SUBCUTANEOUS
     Route: 058
     Dates: start: 20030901
  2. LEVOTHYROXINE SODIUM [Concomitant]
  3. LANSOPRAZOLE [Concomitant]
  4. LISINOPRIL [Concomitant]
  5. FLUTICASONE PROPIONATE [Concomitant]
  6. ALBUTEROL SULFATE [Concomitant]
  7. IBUPROFEN [Concomitant]
  8. VICODIN [Concomitant]

REACTIONS (1)
  - AMNESIA [None]
